FAERS Safety Report 17897281 (Version 1)
Quarter: 2020Q2

REPORT INFORMATION
  Report Type: Spontaneous
  Country: US (occurrence: US)
  Receive Date: 20200615
  Receipt Date: 20200615
  Transmission Date: 20200714
  Serious: Yes (Hospitalization)
  Sender: FDA-Public Use
  Company Number: US-OTSUKA-2020_014229

PATIENT
  Sex: Female

DRUGS (3)
  1. SAMSCA [Suspect]
     Active Substance: TOLVAPTAN
     Indication: HYPONATRAEMIA
     Dosage: 7.5 MG, QD
     Route: 065
     Dates: start: 20200531, end: 20200605
  2. UREA. [Suspect]
     Active Substance: UREA
     Indication: HYPONATRAEMIA
     Dosage: UNK
     Route: 065
     Dates: start: 202006
  3. SODIUM [Suspect]
     Active Substance: SODIUM
     Indication: HYPONATRAEMIA
     Dosage: UNK
     Route: 065
     Dates: start: 202006

REACTIONS (4)
  - Therapy interrupted [Unknown]
  - Underdose [Unknown]
  - Inability to afford medication [Unknown]
  - Blood sodium decreased [Not Recovered/Not Resolved]

NARRATIVE: CASE EVENT DATE: 20200531
